FAERS Safety Report 14786714 (Version 3)
Quarter: 2018Q4

REPORT INFORMATION
  Report Type: Report from Study
  Country: US (occurrence: US)
  Receive Date: 20180420
  Receipt Date: 20181022
  Transmission Date: 20190204
  Serious: Yes (Hospitalization, Other)
  Sender: FDA-Public Use
  Company Number: US-ACTELION-A-NJ2018-169475

PATIENT
  Age: 49 Year
  Sex: Female
  Weight: 79.82 kg

DRUGS (4)
  1. OPSUMIT [Suspect]
     Active Substance: MACITENTAN
     Indication: PULMONARY ARTERIAL HYPERTENSION
     Dosage: 10 MG, QD
     Route: 048
     Dates: start: 20150911
  2. ADCIRCA [Concomitant]
     Active Substance: TADALAFIL
  3. LASIX [Suspect]
     Active Substance: FUROSEMIDE
     Indication: PRODUCT USED FOR UNKNOWN INDICATION
     Route: 065
  4. REMODULIN [Concomitant]
     Active Substance: TREPROSTINIL

REACTIONS (12)
  - Anaemia [Unknown]
  - Swelling face [Unknown]
  - Blood culture positive [Unknown]
  - Immune tolerance induction [Unknown]
  - Fluid retention [Unknown]
  - Tinnitus [Unknown]
  - Nasal congestion [Unknown]
  - Presyncope [Unknown]
  - Transfusion [Unknown]
  - Pain in extremity [Unknown]
  - Upper gastrointestinal haemorrhage [Unknown]
  - Dizziness [Unknown]

NARRATIVE: CASE EVENT DATE: 201511
